FAERS Safety Report 4924977-0 (Version None)
Quarter: 2006Q1

REPORT INFORMATION
  Report Type: 
  Country: None (occurrence: None)
  Receive Date: 20060222
  Receipt Date: 20060208
  Transmission Date: 20060701
  Serious: Yes (Other)
  Sender: FDA-Public Use
  Company Number: 2006-00593

PATIENT
  Sex: Female
  Weight: 54 kg

DRUGS (4)
  1. KENTERA (WATSON LABORATORIES) (OXYBUTYNIN) TRANSDERMAL PATCH, 3.9MG [Suspect]
     Dosage: 1 PATCH, 2/WEEK, TRANSDERMAL
     Route: 062
     Dates: start: 20051213, end: 20051217
  2. ESTRADIOL [Concomitant]
  3. ALENDRONIC ACID (ALENDRONIC ACID) [Concomitant]
  4. THYROXIN [Concomitant]

REACTIONS (2)
  - HYPOAESTHESIA [None]
  - MUSCULAR WEAKNESS [None]
